FAERS Safety Report 4347235-4 (Version None)
Quarter: 2004Q2

REPORT INFORMATION
  Report Type: 
  Country: None (occurrence: None)
  Receive Date: 20040426
  Receipt Date: 20030820
  Transmission Date: 20050107
  Serious: Yes (Hospitalization, Disabling, Other)
  Sender: FDA-Public Use
  Company Number: US-MERCK-0308USA01980

PATIENT
  Age: 71 Year
  Sex: Male
  Weight: 91 kg

DRUGS (3)
  1. TYLENOL (CAPLET) [Concomitant]
     Route: 065
  2. VIOXX [Suspect]
     Indication: ARTHRALGIA
     Route: 048
     Dates: start: 20010701, end: 20010712
  3. VIOXX [Suspect]
     Indication: ARTHRITIS
     Route: 048
     Dates: start: 20010701, end: 20010712

REACTIONS (40)
  - ARRHYTHMIA [None]
  - ATHEROSCLEROSIS [None]
  - ATRIOVENTRICULAR BLOCK FIRST DEGREE [None]
  - BENIGN PROSTATIC HYPERPLASIA [None]
  - BUNDLE BRANCH BLOCK RIGHT [None]
  - CAROTID ARTERY ATHEROMA [None]
  - CEREBELLAR INFARCTION [None]
  - CEREBRAL ATHEROSCLEROSIS [None]
  - CEREBRAL ATROPHY [None]
  - CEREBRAL INFARCTION [None]
  - CEREBRAL VENTRICLE DILATATION [None]
  - CEREBROVASCULAR DISORDER [None]
  - CHEST PAIN [None]
  - COORDINATION ABNORMAL [None]
  - CORONARY ARTERY ATHEROSCLEROSIS [None]
  - CORONARY ARTERY DISEASE [None]
  - DIZZINESS [None]
  - DYSLIPIDAEMIA [None]
  - GAIT DISTURBANCE [None]
  - GASTRIC DISORDER [None]
  - GASTROOESOPHAGEAL REFLUX DISEASE [None]
  - HEADACHE [None]
  - HEMIPARESIS [None]
  - HYPERHIDROSIS [None]
  - HYPERTENSION [None]
  - HYPERTENSIVE HEART DISEASE [None]
  - LACUNAR INFARCTION [None]
  - NYSTAGMUS [None]
  - POLYTRAUMATISM [None]
  - PROSTATIC SPECIFIC ANTIGEN INCREASED [None]
  - REFUSAL OF TREATMENT BY PATIENT [None]
  - SINUS BRADYCARDIA [None]
  - SINUS TACHYCARDIA [None]
  - SUPRAVENTRICULAR TACHYCARDIA [None]
  - THROMBOEMBOLIC STROKE [None]
  - TRANSIENT ISCHAEMIC ATTACK [None]
  - URINARY RETENTION [None]
  - VENTRICULAR TACHYCARDIA [None]
  - VERTIGO [None]
  - VESTIBULAR DISORDER [None]
